FAERS Safety Report 7456715-4 (Version None)
Quarter: 2011Q2

REPORT INFORMATION
  Report Type: 
  Country: None (occurrence: None)
  Receive Date: 20110503
  Receipt Date: 20100518
  Transmission Date: 20111010
  Serious: No
  Sender: FDA-Public Use
  Company Number: US-SANOFI-AVENTIS-2010SA030894

PATIENT
  Age: 46 Year
  Sex: Female

DRUGS (2)
  1. APIDRA [Suspect]
     Dosage: DOSE:5 UNIT(S)
     Route: 058
     Dates: start: 20100517
  2. LANTUS [Suspect]
     Dates: start: 20100517

REACTIONS (1)
  - HUNGER [None]
